FAERS Safety Report 4373815-6 (Version None)
Quarter: 2004Q2

REPORT INFORMATION
  Report Type: 
  Country: None (occurrence: None)
  Receive Date: 20040603
  Receipt Date: 20040518
  Transmission Date: 20050107
  Serious: Yes (Hospitalization)
  Sender: FDA-Public Use
  Company Number: DSA_24439_2004

PATIENT
  Age: 55 Year
  Sex: Male

DRUGS (2)
  1. TEVETEN [Suspect]
     Indication: HYPERTENSION
     Dosage: DF Q DAY PO
     Route: 048
     Dates: start: 20030901, end: 20030101
  2. HYDROCHLOROTHIAZIDE [Concomitant]

REACTIONS (1)
  - MYOCARDIAL INFARCTION [None]
